FAERS Safety Report 21098458 (Version 4)
Quarter: 2022Q3

REPORT INFORMATION
  Report Type: Report from Study
  Country: JP (occurrence: JP)
  Receive Date: 20220719
  Receipt Date: 20220802
  Transmission Date: 20221027
  Serious: Yes (Hospitalization)
  Sender: FDA-Public Use
  Company Number: JP-ALFASIGMA-2022-AER-00103

PATIENT
  Age: 12 Year
  Sex: Female

DRUGS (12)
  1. RIFAXIMIN [Suspect]
     Active Substance: RIFAXIMIN
     Indication: Hepatic encephalopathy
     Route: 048
     Dates: start: 20220707, end: 20220708
  2. RIFAXIMIN [Suspect]
     Active Substance: RIFAXIMIN
     Route: 048
     Dates: start: 20220708, end: 20220708
  3. PROPRANOLOL HYDROCHLORIDE [Concomitant]
     Active Substance: PROPRANOLOL HYDROCHLORIDE
     Indication: Product used for unknown indication
     Route: 048
     Dates: start: 20130202
  4. LANSOPRAZOLE [Concomitant]
     Active Substance: LANSOPRAZOLE
     Indication: Product used for unknown indication
     Dosage: LANSOPRAZOLE OD
     Route: 048
     Dates: start: 20130918
  5. LACTULOSE [Concomitant]
     Active Substance: LACTULOSE
     Indication: Product used for unknown indication
     Route: 048
     Dates: start: 20120907
  6. SODIUM FERROUS CITRATE [Concomitant]
     Active Substance: SODIUM FERROUS CITRATE
     Indication: Product used for unknown indication
     Route: 048
     Dates: start: 20210907
  7. SINGULAIR [Concomitant]
     Active Substance: MONTELUKAST SODIUM
     Indication: Dermatitis atopic
     Route: 048
     Dates: start: 20210427
  8. CLARITIN REDITABS [Concomitant]
     Active Substance: LORATADINE
     Indication: Dermatitis atopic
     Route: 048
     Dates: start: 20210427
  9. CLINDAMYCIN PHOSPHATE [Concomitant]
     Active Substance: CLINDAMYCIN PHOSPHATE
     Indication: Acne
     Route: 062
     Dates: start: 20201110
  10. HEPARINOID [Concomitant]
     Indication: Dermatitis atopic
     Route: 062
     Dates: start: 20200609
  11. BETAMETHASONE VALERATE [Concomitant]
     Active Substance: BETAMETHASONE VALERATE
     Indication: Dermatitis atopic
     Route: 062
     Dates: start: 20220709
  12. DIFFERIN [Concomitant]
     Active Substance: ADAPALENE
     Indication: Acne
     Route: 062
     Dates: start: 20220607

REACTIONS (2)
  - Enterocolitis [Recovered/Resolved]
  - Product use issue [Unknown]

NARRATIVE: CASE EVENT DATE: 20220707
